FAERS Safety Report 16075513 (Version 2)
Quarter: 2019Q1

REPORT INFORMATION
  Report Type: Report from Study
  Country: ES (occurrence: ES)
  Receive Date: 20190315
  Receipt Date: 20190318
  Transmission Date: 20190418
  Serious: Yes (Other)
  Sender: FDA-Public Use
  Company Number: ES-ROCHE-2281156

PATIENT
  Age: 67 Year
  Sex: Male
  Weight: 105.2 kg

DRUGS (12)
  1. RO 6874281 (FAP IL2V MAB) [Suspect]
     Active Substance: RO-6874281
     Indication: RENAL CELL CARCINOMA
     Dosage: MOST RECENT DOSE PRIOR TO EVENT : 06/MAR/2019
     Route: 042
     Dates: start: 20190213
  2. AMLODIPINE [Concomitant]
     Active Substance: AMLODIPINE BESYLATE
     Route: 065
     Dates: start: 20180307
  3. MIRTAZAPINE. [Concomitant]
     Active Substance: MIRTAZAPINE
     Route: 065
     Dates: start: 201702
  4. DIAMICRON [Concomitant]
     Active Substance: GLICLAZIDE
     Route: 065
     Dates: start: 201605
  5. INACID (INDOMETACIN) [Concomitant]
     Route: 065
     Dates: start: 20190306
  6. ATEZOLIZUMAB. [Suspect]
     Active Substance: ATEZOLIZUMAB
     Indication: RENAL CELL CARCINOMA
     Dosage: MOST RECENT DOSE PRIOR TO EVENT : 06/MAR/2019
     Route: 042
     Dates: start: 20190213
  7. METFORMIN [Concomitant]
     Active Substance: METFORMIN HYDROCHLORIDE
     Route: 065
     Dates: start: 20150716
  8. OMEPRAZOLE. [Concomitant]
     Active Substance: OMEPRAZOLE
     Route: 065
     Dates: start: 201508
  9. XOTERNA [Concomitant]
     Route: 065
     Dates: start: 201702
  10. PARACETAMOL [Concomitant]
     Active Substance: ACETAMINOPHEN
     Route: 065
     Dates: start: 20190306
  11. BEVACIZUMAB. [Suspect]
     Active Substance: BEVACIZUMAB
     Indication: RENAL CELL CARCINOMA
     Dosage: MOST RECENT DOSE PRIOR TO EVENT : 13/FEB/2019
     Route: 042
     Dates: start: 20190213
  12. BUDESONIDE. [Concomitant]
     Active Substance: BUDESONIDE
     Route: 065
     Dates: start: 201702

REACTIONS (1)
  - Hepatotoxicity [Recovered/Resolved]

NARRATIVE: CASE EVENT DATE: 20190307
